FAERS Safety Report 21633264 (Version 3)
Quarter: 2022Q4

REPORT INFORMATION
  Report Type: Spontaneous
  Country: US (occurrence: US)
  Receive Date: 20221123
  Receipt Date: 20221219
  Transmission Date: 20230112
  Serious: No
  Sender: FDA-Public Use
  Company Number: US-BEH-2022152069

PATIENT
  Sex: Female

DRUGS (17)
  1. HIZENTRA [Suspect]
     Active Substance: HUMAN IMMUNOGLOBULIN G
     Indication: Transient ischaemic attack
     Dosage: 14 GRAM, QOW
     Route: 058
  2. HIZENTRA [Suspect]
     Active Substance: HUMAN IMMUNOGLOBULIN G
     Indication: Cerebral infarction
     Dosage: 14 GRAM, QOW
     Route: 058
  3. HIZENTRA [Suspect]
     Active Substance: HUMAN IMMUNOGLOBULIN G
     Dosage: 14 GRAM, QOW
     Route: 058
     Dates: start: 202101
  4. OXYCODONE HYDROCHLORIDE [Concomitant]
     Active Substance: OXYCODONE HYDROCHLORIDE
  5. ASPIRIN [Concomitant]
     Active Substance: ASPIRIN
  6. BIOTIN [Concomitant]
     Active Substance: BIOTIN
  7. CALCIUM CARBONATE [Concomitant]
     Active Substance: CALCIUM CARBONATE
  8. CEPHALEXIN [Concomitant]
     Active Substance: CEPHALEXIN
  9. CLONAZEPAM [Concomitant]
     Active Substance: CLONAZEPAM
  10. LAMOTRIGINE [Concomitant]
     Active Substance: LAMOTRIGINE
  11. LAMOTRIGINE [Concomitant]
     Active Substance: LAMOTRIGINE
  12. METHENAMINE [Concomitant]
     Active Substance: METHENAMINE
  13. VITAMINS [Concomitant]
     Active Substance: VITAMINS
  14. OMEPRAZOLE [Concomitant]
     Active Substance: OMEPRAZOLE
  15. PREDNISONE [Concomitant]
     Active Substance: PREDNISONE
  16. VITAMIN D3 [Concomitant]
     Active Substance: CHOLECALCIFEROL
  17. XANAX [Concomitant]
     Active Substance: ALPRAZOLAM

REACTIONS (7)
  - Diarrhoea [Not Recovered/Not Resolved]
  - Fatigue [Not Recovered/Not Resolved]
  - No adverse event [Unknown]
  - Off label use [Unknown]
  - Feeling abnormal [Not Recovered/Not Resolved]
  - Hypotension [Recovered/Resolved]
  - Blood pressure decreased [Recovering/Resolving]
